FAERS Safety Report 14767748 (Version 8)
Quarter: 2018Q4

REPORT INFORMATION
  Report Type: Report from Study
  Country: DE (occurrence: DE)
  Receive Date: 20180417
  Receipt Date: 20181009
  Transmission Date: 20190204
  Serious: Yes (Other)
  Sender: FDA-Public Use
  Company Number: DE-AMGEN-DEUSP2018051338

PATIENT
  Age: 40 Year
  Sex: Male
  Weight: 105 kg

DRUGS (3)
  1. HUMIRA [Suspect]
     Active Substance: ADALIMUMAB
     Indication: ANKYLOSING SPONDYLITIS
     Dosage: 1 DF, EVERY 14 DAYS; 40 MG EVERY 14 DAYS
     Route: 058
     Dates: start: 20170511, end: 201711
  2. ENBREL [Suspect]
     Active Substance: ETANERCEPT
     Indication: ANKYLOSING SPONDYLITIS
     Dosage: UNK
     Route: 065
     Dates: start: 201711, end: 201803
  3. HUMIRA [Suspect]
     Active Substance: ADALIMUMAB
     Dosage: 1 DF, EVERY 14 DAYS; 40 MG EVERY 14 DAYS
     Route: 058
     Dates: start: 20180327

REACTIONS (14)
  - Vocal cord inflammation [Recovered/Resolved]
  - Middle ear inflammation [Recovered/Resolved]
  - Sinusitis [Recovered/Resolved]
  - Bronchitis [Recovered/Resolved]
  - Therapeutic response shortened [Not Recovered/Not Resolved]
  - Sensitivity to weather change [Not Recovered/Not Resolved]
  - Pain [Not Recovered/Not Resolved]
  - Type 2 diabetes mellitus [Not Recovered/Not Resolved]
  - Pain in extremity [Recovered/Resolved]
  - Rhinitis [Recovered/Resolved]
  - Fatigue [Not Recovered/Not Resolved]
  - Middle ear effusion [Unknown]
  - Middle ear inflammation [Not Recovered/Not Resolved]
  - Weight decreased [Not Recovered/Not Resolved]

NARRATIVE: CASE EVENT DATE: 201705
